FAERS Safety Report 25450998 (Version 2)
Quarter: 2025Q2

REPORT INFORMATION
  Report Type: Spontaneous
  Country: SA (occurrence: SA)
  Receive Date: 20250618
  Receipt Date: 20250620
  Transmission Date: 20250717
  Serious: No
  Sender: PFIZER
  Company Number: SA-PFIZER INC-PV202500071790

PATIENT
  Age: 62 Year
  Sex: Female

DRUGS (3)
  1. ADALIMUMAB [Suspect]
     Active Substance: ADALIMUMAB
     Indication: Colitis ulcerative
     Route: 058
  2. ADALIMUMAB [Suspect]
     Active Substance: ADALIMUMAB
     Route: 058
  3. ENTECAVIR [Concomitant]
     Active Substance: ENTECAVIR
     Indication: Hepatitis B

REACTIONS (2)
  - Drug eruption [Recovering/Resolving]
  - Off label use [Unknown]
